FAERS Safety Report 18229314 (Version 1)
Quarter: 2020Q3

REPORT INFORMATION
  Report Type: Spontaneous
  Country: DE (occurrence: DE)
  Receive Date: 20200903
  Receipt Date: 20200903
  Transmission Date: 20201103
  Serious: Yes (Hospitalization)
  Sender: FDA-Public Use
  Company Number: DE-JNJFOC-20200838399

PATIENT
  Age: 70 Year
  Sex: Male

DRUGS (4)
  1. RIVAROXABAN [Suspect]
     Active Substance: RIVAROXABAN
     Indication: PRODUCT USED FOR UNKNOWN INDICATION
     Dosage: 10 MG, QD
     Route: 048
  2. METAMIZOLE [Concomitant]
     Active Substance: METAMIZOLE
     Dosage: 30 GTT, 1?1?1?1
  3. PANTOPRAZOLE [Concomitant]
     Active Substance: PANTOPRAZOLE
     Dosage: 40 MG, OM
  4. ATORVASTATIN [Concomitant]
     Active Substance: ATORVASTATIN
     Dosage: 40 MG, QD

REACTIONS (6)
  - Nausea [Unknown]
  - Haematuria [Unknown]
  - Flank pain [Unknown]
  - Vomiting [Unknown]
  - Nocturia [Unknown]
  - Musculoskeletal pain [Unknown]
